FAERS Safety Report 6177058-5 (Version None)
Quarter: 2009Q2

REPORT INFORMATION
  Report Type: 
  Country: None (occurrence: None)
  Receive Date: 20090501
  Receipt Date: 20090423
  Transmission Date: 20091009
  Serious: Yes (Hospitalization)
  Sender: FDA-Public Use
  Company Number: ZA-GILEAD-2009-0021633

PATIENT
  Age: 47 Year
  Sex: Male
  Weight: 66.1 kg

DRUGS (7)
  1. EMTRIVA [Suspect]
     Indication: HIV INFECTION
     Route: 048
     Dates: start: 20090313, end: 20090322
  2. VIREAD [Suspect]
     Indication: HIV INFECTION
     Route: 048
     Dates: start: 20090313, end: 20090322
  3. SUSTIVA [Suspect]
     Indication: HIV INFECTION
     Route: 048
     Dates: start: 20090313, end: 20090322
  4. RIFAFOUR [Concomitant]
     Indication: TUBERCULOSIS
     Dates: end: 20090325
  5. PYRIDOXINE [Concomitant]
     Indication: TUBERCULOSIS
     Dates: end: 20090325
  6. PHENOBARBITAL TAB [Concomitant]
     Indication: CONVULSION
  7. BACTRIM [Concomitant]
     Dates: end: 20090324

REACTIONS (1)
  - CONFUSIONAL STATE [None]
